FAERS Safety Report 6546244-4 (Version None)
Quarter: 2010Q1

REPORT INFORMATION
  Report Type: 
  Country: None (occurrence: None)
  Receive Date: 20100122
  Receipt Date: 20100118
  Transmission Date: 20100710
  Serious: Yes (Hospitalization)
  Sender: FDA-Public Use
  Company Number: AR-BRISTOL-MYERS SQUIBB COMPANY-14524649

PATIENT
  Age: 69 Year
  Sex: Male

DRUGS (14)
  1. BLINDED: DAPAGLIFLOZIN [Suspect]
     Indication: TYPE 2 DIABETES MELLITUS
     Dosage: INTERRUPTED ON 16-FEB-09
     Dates: start: 20080731, end: 20090216
  2. METFORMIN HCL [Suspect]
     Indication: TYPE 2 DIABETES MELLITUS
     Dosage: INTERRUPTED ON 16-FEB-09; 26FEB, 01MAR, 02MAR09
  3. BLINDED: GLIPIZIDE [Suspect]
     Indication: TYPE 2 DIABETES MELLITUS
     Dates: start: 20080731, end: 20090216
  4. BLINDED: PLACEBO [Suspect]
     Indication: TYPE 2 DIABETES MELLITUS
     Dosage: INTERRUPTED ON 16-FEB-09
     Dates: start: 20080731, end: 20090216
  5. CARVEDILOL [Concomitant]
     Indication: HYPERTENSION
     Route: 048
     Dates: end: 20090217
  6. AMLODIPINE [Concomitant]
     Indication: HYPERTENSION
     Route: 048
     Dates: end: 20090217
  7. TRANQUINAL [Concomitant]
     Indication: INSOMNIA
     Route: 048
  8. ATORVASTATIN CALCIUM [Concomitant]
     Indication: DYSLIPIDAEMIA
     Route: 048
     Dates: end: 20090217
  9. ENALAPRIL MALEATE [Concomitant]
     Indication: HYPERTENSION
     Route: 048
     Dates: start: 20080919
  10. HYDROCHLOROTHIAZIDE [Concomitant]
     Indication: HYPERTENSION
     Route: 048
     Dates: start: 20080919, end: 20090217
  11. FLUCONAZOLE [Concomitant]
     Indication: ONYCHOMYCOSIS
     Route: 048
     Dates: start: 20081024
  12. ACETYLSALICYLIC ACID [Concomitant]
     Indication: PROPHYLAXIS
     Route: 048
  13. DIOVAN [Concomitant]
     Dates: end: 20080901
  14. GLICLAZIDE [Concomitant]
     Dates: start: 20090201

REACTIONS (1)
  - CORONARY ARTERY DISEASE [None]
